FAERS Safety Report 23665401 (Version 1)
Quarter: 2024Q1

REPORT INFORMATION
  Report Type: Report from Study
  Country: CA (occurrence: CA)
  Receive Date: 20240323
  Receipt Date: 20240323
  Transmission Date: 20240409
  Serious: Yes (Other)
  Sender: FDA-Public Use
  Company Number: CA-HEALTH CANADA-06058464

PATIENT
  Sex: Female

DRUGS (2)
  1. CITALOPRAM [Interacting]
     Active Substance: CITALOPRAM\CITALOPRAM HYDROBROMIDE
     Indication: Product used for unknown indication
     Dosage: DOSE DESC: UNK, FORM: UNKNOWN
     Route: 048
  2. DONEPEZIL HYDROCHLORIDE [Interacting]
     Active Substance: DONEPEZIL HYDROCHLORIDE
     Indication: Secondary progressive multiple sclerosis
     Dosage: DAILY DOSE: 1.0 DF
     Route: 048

REACTIONS (1)
  - Potentiating drug interaction [Unknown]
